FAERS Safety Report 21621969 (Version 2)
Quarter: 2022Q4

REPORT INFORMATION
  Report Type: Spontaneous
  Country: FR (occurrence: FR)
  Receive Date: 20221121
  Receipt Date: 20221202
  Transmission Date: 20230112
  Serious: Yes (Other)
  Sender: FDA-Public Use
  Company Number: FR-UCBSA-2022066377

PATIENT
  Sex: Female
  Weight: 65 kg

DRUGS (2)
  1. CIMZIA [Suspect]
     Active Substance: CERTOLIZUMAB PEGOL
     Indication: Rheumatic disorder
     Dosage: 200 MILLIGRAM, EV 15 DAYS
     Dates: start: 2020, end: 20201024
  2. METHOTREXATE [Concomitant]
     Active Substance: METHOTREXATE
     Indication: Polyarthritis

REACTIONS (3)
  - Hepatic cytolysis [Recovering/Resolving]
  - Hepatitis E [Recovering/Resolving]
  - Product use in unapproved indication [Unknown]
